FAERS Safety Report 25913899 (Version 1)
Quarter: 2025Q4

REPORT INFORMATION
  Report Type: Spontaneous
  Country: US (occurrence: US)
  Receive Date: 20251013
  Receipt Date: 20251013
  Transmission Date: 20260118
  Serious: Yes (Death, Other)
  Sender: AMGEN
  Company Number: US-AMGEN-USASP2025197405

PATIENT
  Age: 15 Year
  Sex: Male

DRUGS (25)
  1. FILGRASTIM [Suspect]
     Active Substance: FILGRASTIM
     Indication: Acute myeloid leukaemia refractory
     Dosage: UNK UNK, Q2WK
     Route: 065
  2. FILGRASTIM [Suspect]
     Active Substance: FILGRASTIM
     Indication: Acute myeloid leukaemia recurrent
  3. CYTARABINE [Suspect]
     Active Substance: CYTARABINE
     Indication: Acute myeloid leukaemia recurrent
     Dosage: UNK UNK, Q2WK
     Route: 029
  4. CYTARABINE [Suspect]
     Active Substance: CYTARABINE
     Indication: Acute myeloid leukaemia refractory
  5. DECITABINE [Suspect]
     Active Substance: DECITABINE
     Indication: Acute myeloid leukaemia recurrent
     Dosage: UNK UNK, Q2WK
     Route: 065
  6. DECITABINE [Suspect]
     Active Substance: DECITABINE
     Indication: Acute myeloid leukaemia refractory
  7. FLUDARABINE [Suspect]
     Active Substance: FLUDARABINE PHOSPHATE
     Indication: Acute myeloid leukaemia recurrent
     Dosage: UNK UNK, Q2WK
     Route: 065
  8. FLUDARABINE [Suspect]
     Active Substance: FLUDARABINE PHOSPHATE
     Indication: Acute myeloid leukaemia refractory
  9. VORINOSTAT [Suspect]
     Active Substance: VORINOSTAT
     Indication: Acute myeloid leukaemia recurrent
     Dosage: UNK UNK, Q2WK
     Route: 065
  10. VORINOSTAT [Suspect]
     Active Substance: VORINOSTAT
     Indication: Acute myeloid leukaemia refractory
  11. HYDROXYUREA [Suspect]
     Active Substance: HYDROXYUREA
     Indication: Hypervolaemia
     Dosage: UNK
     Route: 065
  12. HYDROXYUREA [Suspect]
     Active Substance: HYDROXYUREA
     Indication: Differentiation syndrome
  13. DEXAMETHASONE [Suspect]
     Active Substance: DEXAMETHASONE
     Indication: Hypervolaemia
     Dosage: UNK
     Route: 065
  14. DEXAMETHASONE [Suspect]
     Active Substance: DEXAMETHASONE
     Indication: Differentiation syndrome
  15. METHOTREXATE [Suspect]
     Active Substance: METHOTREXATE
     Indication: Differentiation syndrome
     Dosage: UNK
     Route: 029
  16. ASPARAGINASE [Concomitant]
     Active Substance: ASPARAGINASE
  17. ACETAMINOPHEN [Concomitant]
     Active Substance: ACETAMINOPHEN
     Indication: Pain
  18. MORPHINE [Concomitant]
     Active Substance: MORPHINE
     Indication: Pain
  19. GABAPENTIN [Concomitant]
     Active Substance: GABAPENTIN
     Indication: Pain
  20. DULOXETINE [Concomitant]
     Active Substance: DULOXETINE
  21. KETAMINE [Concomitant]
     Active Substance: KETAMINE
  22. VENETOCLAX [Concomitant]
     Active Substance: VENETOCLAX
     Indication: Acute myeloid leukaemia refractory
  23. VENETOCLAX [Concomitant]
     Active Substance: VENETOCLAX
     Indication: Acute myeloid leukaemia recurrent
  24. HYDROCORTISONE [Concomitant]
     Active Substance: HYDROCORTISONE
     Indication: Acute myeloid leukaemia refractory
     Route: 029
  25. HYDROCORTISONE [Concomitant]
     Active Substance: HYDROCORTISONE
     Indication: Acute myeloid leukaemia recurrent

REACTIONS (7)
  - Acute myeloid leukaemia [Fatal]
  - Myelosuppression [Unknown]
  - Viral infection [Unknown]
  - Leukoencephalopathy [Unknown]
  - Differentiation syndrome [Unknown]
  - Spinal cord oedema [Unknown]
  - Hypervolaemia [Unknown]
